FAERS Safety Report 10974070 (Version 1)
Quarter: 2015Q1

REPORT INFORMATION
  Report Type: Spontaneous
  Country: US (occurrence: None)
  Receive Date: 20150226
  Receipt Date: 20150226
  Transmission Date: 20150721
  Serious: No
  Sender: FDA-Public Use
  Company Number: TPA2009A00956

PATIENT
  Age: 75 Year
  Sex: Female
  Weight: 63.5 kg

DRUGS (6)
  1. COLCHICINE. [Concomitant]
     Active Substance: COLCHICINE
  2. VITAMIN D (ERGACALCIFEROL) [Concomitant]
  3. ULTRAM (TRAMADOL HYDROCHLORIDE) [Concomitant]
     Active Substance: TRAMADOL HYDROCHLORIDE
  4. PROBENECID. [Concomitant]
     Active Substance: PROBENECID
  5. HTCZ (HYDROCHLOROTHIAZIDE) [Concomitant]
  6. ULORIC [Suspect]
     Active Substance: FEBUXOSTAT
     Indication: GOUT
     Route: 048
     Dates: start: 20090422, end: 20090503

REACTIONS (1)
  - Rash generalised [None]

NARRATIVE: CASE EVENT DATE: 20090503
